FAERS Safety Report 14652196 (Version 1)
Quarter: 2018Q1

REPORT INFORMATION
  Report Type: Spontaneous
  Country: PT (occurrence: PT)
  Receive Date: 20180318
  Receipt Date: 20180318
  Transmission Date: 20180509
  Serious: Yes (Other)
  Sender: FDA-Public Use
  Company Number: PHHY2017PT164190

PATIENT
  Age: 50 Year
  Sex: Female

DRUGS (2)
  1. LEVOTHYROXINE. [Concomitant]
     Active Substance: LEVOTHYROXINE
     Indication: HYPOTHYROIDISM
     Dosage: UNK
     Route: 065
  2. MONTELUKAST SODIUM. [Suspect]
     Active Substance: MONTELUKAST SODIUM
     Indication: RHINITIS
     Dosage: UNK
     Route: 065

REACTIONS (4)
  - Urticaria [Unknown]
  - Primary biliary cholangitis [Unknown]
  - Chronic hepatitis [Unknown]
  - Drug ineffective [Unknown]
